FAERS Safety Report 19787516 (Version 1)
Quarter: 2021Q3

REPORT INFORMATION
  Report Type: Spontaneous
  Country: US (occurrence: US)
  Receive Date: 20210903
  Receipt Date: 20210903
  Transmission Date: 20211014
  Serious: Yes (Other)
  Sender: FDA-Public Use
  Company Number: US-TERSERA THERAPEUTICS LLC-2020TRS001920

PATIENT

DRUGS (3)
  1. ZOLADEX [Suspect]
     Active Substance: GOSERELIN ACETATE
     Indication: OVARIAN DISORDER
     Dosage: UNK
     Route: 065
     Dates: start: 2013
  2. ZOLADEX [Suspect]
     Active Substance: GOSERELIN ACETATE
     Indication: INVASIVE BREAST CARCINOMA
  3. ZOLADEX [Suspect]
     Active Substance: GOSERELIN ACETATE
     Indication: INTRADUCTAL PROLIFERATIVE BREAST LESION

REACTIONS (5)
  - Amniotic fluid index increased [Unknown]
  - Contraindicated product administered [Unknown]
  - Off label use [Unknown]
  - Exposure during pregnancy [Unknown]
  - Pre-eclampsia [Unknown]
